FAERS Safety Report 4399609-3 (Version None)
Quarter: 2004Q3

REPORT INFORMATION
  Report Type: 
  Country: None (occurrence: None)
  Receive Date: 20040716
  Receipt Date: 20040706
  Transmission Date: 20050211
  Serious: Yes (Hospitalization)
  Sender: FDA-Public Use
  Company Number: GB-BRISTOL-MYERS SQUIBB COMPANY-12631479

PATIENT
  Age: 47 Year
  Sex: Male
  Weight: 80 kg

DRUGS (4)
  1. IRBESARTAN TABS 300 MG [Suspect]
     Indication: HYPERTENSION
     Route: 048
     Dates: start: 20030301, end: 20040523
  2. NATRILIX [Suspect]
     Indication: HYPERTENSION
     Route: 048
     Dates: start: 20030301, end: 20040523
  3. AMLODIPINE [Suspect]
     Indication: HYPERTENSION
     Route: 048
     Dates: start: 20030901, end: 20040523
  4. SANDOSTATIN [Concomitant]
     Dates: start: 20040424

REACTIONS (2)
  - CIRCULATORY COLLAPSE [None]
  - HYPOTENSION [None]
